FAERS Safety Report 4360291-2 (Version None)
Quarter: 2004Q2

REPORT INFORMATION
  Report Type: 
  Country: None (occurrence: None)
  Receive Date: 20040519
  Receipt Date: 20040507
  Transmission Date: 20050107
  Serious: Yes (Death)
  Sender: FDA-Public Use
  Company Number: US-JNJFOC-20040501581

PATIENT
  Sex: Female

DRUGS (8)
  1. INFLIXIMAB [Suspect]
     Route: 042
  2. INFLIXIMAB [Suspect]
     Indication: RHEUMATOID ARTHRITIS
     Route: 042
  3. NEXIUM [Concomitant]
     Route: 065
  4. PREDNISONE [Concomitant]
     Route: 065
  5. SYNTHROID [Concomitant]
     Route: 065
  6. EPOGEN [Concomitant]
     Dosage: WEEKLY
     Route: 065
  7. ESTROGEN [Concomitant]
     Route: 065
  8. FOLIC ACID [Concomitant]
     Route: 065

REACTIONS (2)
  - INFECTION [None]
  - PHLEBITIS [None]
